FAERS Safety Report 6535322-1 (Version None)
Quarter: 2010Q1

REPORT INFORMATION
  Report Type: 
  Country: None (occurrence: None)
  Receive Date: 20100113
  Receipt Date: 20100111
  Transmission Date: 20100710
  Serious: Yes (Disabling)
  Sender: FDA-Public Use
  Company Number: DE-ROCHE-678600

PATIENT
  Age: 73 Year
  Sex: Female
  Weight: 66 kg

DRUGS (4)
  1. BONIVA [Suspect]
     Indication: OSTEOPOROSIS
     Route: 042
     Dates: start: 20091016
  2. CALCIUM [Concomitant]
  3. THYROID HORMONES [Concomitant]
     Indication: THYROID DISORDER
  4. ENALAPRIL MALEATE [Concomitant]
     Route: 048
     Dates: start: 20070101

REACTIONS (1)
  - ALOPECIA [None]
